FAERS Safety Report 17536372 (Version 3)
Quarter: 2020Q2

REPORT INFORMATION
  Report Type: Report from Study
  Country: None (occurrence: PE)
  Receive Date: 20200313
  Receipt Date: 20200410
  Transmission Date: 20200713
  Serious: Yes (Death, Hospitalization, Other)
  Sender: FDA-Public Use
  Company Number: PE-ABBVIE-20K-127-3317147-00

PATIENT
  Age: 76 Year
  Sex: Male

DRUGS (1)
  1. IMBRUVICA [Suspect]
     Active Substance: IBRUTINIB
     Indication: CHRONIC LYMPHOCYTIC LEUKAEMIA
     Route: 048
     Dates: start: 20180518

REACTIONS (3)
  - Pleural effusion [Not Recovered/Not Resolved]
  - Lung neoplasm [Unknown]
  - Death [Fatal]

NARRATIVE: CASE EVENT DATE: 202003
